FAERS Safety Report 6264834-3 (Version None)
Quarter: 2009Q3

REPORT INFORMATION
  Report Type: 
  Country: None (occurrence: None)
  Receive Date: 20090710
  Receipt Date: 20090630
  Transmission Date: 20100115
  Serious: Yes (Other)
  Sender: FDA-Public Use
  Company Number: AR-JNJCH-2009018288

PATIENT
  Age: 54 Year
  Sex: Female

DRUGS (1)
  1. DRAMAMINE [Suspect]
     Indication: VERTIGO
     Dosage: TEXT:50 MG
     Route: 048

REACTIONS (1)
  - ELECTROCARDIOGRAM QT PROLONGED [None]
